FAERS Safety Report 4785312-4 (Version None)
Quarter: 2005Q3

REPORT INFORMATION
  Report Type: 
  Country: None (occurrence: None)
  Receive Date: 20050929
  Receipt Date: 20050916
  Transmission Date: 20060218
  Serious: Yes (Death, Life-Threatening)
  Sender: FDA-Public Use
  Company Number: GXKR2005SE01634

PATIENT
  Age: 59 Year
  Sex: Male

DRUGS (5)
  1. ENALAPRIL + HYDROCHLOROTHIAZIDE SANDOZ (NGX ENALAPRIL, HYDROCHLOROTHIA [Suspect]
     Indication: HYPERTONIA
     Dosage: 20/12.5 MG, ORAL
     Route: 048
     Dates: start: 20041013, end: 20050318
  2. LIPITOR [Concomitant]
  3. PLENDIL [Concomitant]
  4. CARVEDILOL [Concomitant]
  5. LAMISIL [Concomitant]

REACTIONS (10)
  - ANAPHYLACTIC REACTION [None]
  - ANGIONEUROTIC OEDEMA [None]
  - ANOXIC ENCEPHALOPATHY [None]
  - CARDIAC ARREST [None]
  - DRUG HYPERSENSITIVITY [None]
  - DYSPNOEA [None]
  - INJURY ASPHYXIATION [None]
  - LOSS OF CONSCIOUSNESS [None]
  - MALAISE [None]
  - NASOPHARYNGITIS [None]
